FAERS Safety Report 20736991 (Version 6)
Quarter: 2022Q2

REPORT INFORMATION
  Report Type: Spontaneous
  Country: US (occurrence: US)
  Receive Date: 20220421
  Receipt Date: 20220613
  Transmission Date: 20220721
  Serious: No
  Sender: FDA-Public Use
  Company Number: US-PFIZER INC-2021634400

PATIENT
  Age: 35 Year
  Sex: Male
  Weight: 90.72 kg

DRUGS (3)
  1. LYRICA [Suspect]
     Active Substance: PREGABALIN
     Indication: Nerve injury
     Dosage: 300 MG, 2X/DAY
     Dates: start: 2014
  2. LYRICA [Suspect]
     Active Substance: PREGABALIN
     Dosage: 150 MG
  3. AMITRIPTYLINE [Concomitant]
     Active Substance: AMITRIPTYLINE
     Indication: Sleep disorder
     Dosage: 125 MG, DAILY ONCE AT NIGHT

REACTIONS (2)
  - Drug ineffective [Unknown]
  - Faeces hard [Unknown]

NARRATIVE: CASE EVENT DATE: 20200101
